FAERS Safety Report 8583701-3 (Version None)
Quarter: 2012Q3

REPORT INFORMATION
  Report Type: 
  Country: None (occurrence: None)
  Receive Date: 20120809
  Receipt Date: 20120712
  Transmission Date: 20120928
  Serious: Yes (Hospitalization)
  Sender: FDA-Public Use
  Company Number: JP-009507513-1207JPN007418

PATIENT

DRUGS (15)
  1. AMLODIPINE BESYLATE [Concomitant]
     Indication: HYPERTENSION
     Route: 048
  2. FAMOTIDINE [Concomitant]
     Indication: PROPHYLAXIS
     Route: 048
  3. REBETOL [Suspect]
     Indication: HEPATITIS C
     Route: 048
     Dates: start: 20120510, end: 20120527
  4. REBETOL [Suspect]
     Route: 048
     Dates: start: 20120604
  5. TELAVIC [Suspect]
     Route: 048
     Dates: start: 20120605
  6. LAXOBERON [Concomitant]
     Indication: PROPHYLAXIS
     Dosage: IT IS SINGLE USE DURING TEN DROPS/DAY.
     Route: 048
  7. PURSENNID (SENNOSIDES) [Concomitant]
     Indication: PROPHYLAXIS
     Route: 048
  8. LOXONIN [Concomitant]
     Indication: PROPHYLAXIS
     Dosage: IT IS SINGLE USE DURING 60MG/DAY.
     Route: 048
     Dates: start: 20120523
  9. MUCOSTA [Concomitant]
     Indication: PROPHYLAXIS
     Dosage: IT IS SINGLE USE DURING 100MG/DAY.
     Route: 048
     Dates: start: 20120523
  10. JUVELA [Concomitant]
     Indication: PROPHYLAXIS
     Route: 048
  11. PEG-INTRON [Suspect]
     Indication: HEPATITIS C
     Dosage: 1.5MCG/KG/WEEK
     Route: 058
     Dates: start: 20120510
  12. REBETOL [Suspect]
     Route: 048
     Dates: start: 20120528, end: 20120603
  13. TELAVIC [Suspect]
     Indication: HEPATITIS C
     Route: 048
     Dates: start: 20120510, end: 20120603
  14. EVAMYL [Concomitant]
     Indication: PROPHYLAXIS
     Dosage: IT IS SINGLE USE DURING 1MG/DAY.
     Route: 048
  15. ASPIRIN [Concomitant]
     Indication: CEREBRAL INFARCTION
     Route: 048

REACTIONS (4)
  - HYPOAESTHESIA [None]
  - VOMITING [None]
  - DIZZINESS [None]
  - HEADACHE [None]
